FAERS Safety Report 7295181-9 (Version None)
Quarter: 2011Q1

REPORT INFORMATION
  Report Type: 
  Country: None (occurrence: None)
  Receive Date: 20110216
  Receipt Date: 20101109
  Transmission Date: 20110831
  Serious: No
  Sender: FDA-Public Use
  Company Number: A0891929A

PATIENT
  Sex: Male

DRUGS (1)
  1. VOTRIENT [Suspect]
     Route: 048
     Dates: start: 20101019

REACTIONS (6)
  - DIARRHOEA [None]
  - SKIN CHAPPED [None]
  - DYSPHONIA [None]
  - DRY SKIN [None]
  - ONYCHOCLASIS [None]
  - FATIGUE [None]
